FAERS Safety Report 5427115-3 (Version None)
Quarter: 2007Q3

REPORT INFORMATION
  Report Type: 
  Country: None (occurrence: None)
  Receive Date: 20070824
  Receipt Date: 20070824
  Transmission Date: 20080115
  Serious: Yes (Other)
  Sender: FDA-Public Use
  Company Number: None

PATIENT
  Age: 69 Year
  Sex: Male
  Weight: 90.7194 kg

DRUGS (1)
  1. CEPHALEXIN [Suspect]
     Indication: BONE CYST
     Dosage: 1 TABLET 2X DAILY
     Dates: start: 20070820, end: 20070820

REACTIONS (1)
  - VOMITING [None]
